FAERS Safety Report 8248368-2 (Version None)
Quarter: 2012Q1

REPORT INFORMATION
  Report Type: 
  Country: None (occurrence: None)
  Receive Date: 20120330
  Receipt Date: 20120321
  Transmission Date: 20120608
  Serious: Yes (Hospitalization, Other)
  Sender: FDA-Public Use
  Company Number: US-ASTRAZENECA-2012SE13380

PATIENT
  Age: 43 Year
  Sex: Male

DRUGS (2)
  1. PLAVIX [Concomitant]
  2. BRILINTA [Suspect]
     Route: 048

REACTIONS (2)
  - CORONARY ARTERY OCCLUSION [None]
  - CARDIAC DISORDER [None]
